FAERS Safety Report 5478766-1 (Version None)
Quarter: 2007Q4

REPORT INFORMATION
  Report Type: 
  Country: None (occurrence: None)
  Receive Date: 20071005
  Receipt Date: 20071003
  Transmission Date: 20080405
  Serious: Yes (Hospitalization)
  Sender: FDA-Public Use
  Company Number: JP-MERCK-0709USA00167

PATIENT
  Age: 70 Year
  Sex: Male
  Weight: 60 kg

DRUGS (3)
  1. PRIMAXIN [Suspect]
     Indication: PANCREATITIS
     Route: 042
     Dates: start: 20070720, end: 20070726
  2. FOY [Suspect]
     Indication: PANCREATITIS
     Route: 042
     Dates: start: 20070720, end: 20070804
  3. CEFMETAZON [Suspect]
     Route: 042
     Dates: start: 20070804, end: 20070806

REACTIONS (1)
  - LIVER DISORDER [None]
